FAERS Safety Report 5491003-7 (Version None)
Quarter: 2007Q4

REPORT INFORMATION
  Report Type: 
  Country: None (occurrence: None)
  Receive Date: 20071019
  Receipt Date: 20071010
  Transmission Date: 20080405
  Serious: Yes (Other)
  Sender: FDA-Public Use
  Company Number: US-PFIZER INC-2007043083

PATIENT
  Sex: Male
  Weight: 71.7 kg

DRUGS (1)
  1. CELEBREX [Suspect]
     Indication: BLOOD CHOLESTEROL INCREASED

REACTIONS (1)
  - RETINAL ARTERY OCCLUSION [None]
